FAERS Safety Report 25364466 (Version 1)
Quarter: 2025Q2

REPORT INFORMATION
  Report Type: Spontaneous
  Country: US (occurrence: None)
  Receive Date: 20250527
  Receipt Date: 20250527
  Transmission Date: 20250717
  Serious: No
  Sender: FDA-CTU
  Company Number: None

PATIENT
  Age: 64 Year
  Sex: Female
  Weight: 90.9 kg

DRUGS (8)
  1. WEGOVY [Suspect]
     Active Substance: SEMAGLUTIDE
     Indication: Weight decreased
     Dosage: OTHER QUANTITY : 4 INJECTION(S);?OTHER FREQUENCY : 1 WEEKLY;?
     Route: 030
     Dates: start: 20250502, end: 20250524
  2. MODAFINIL [Concomitant]
     Active Substance: MODAFINIL
  3. AMLODIPINE [Concomitant]
     Active Substance: AMLODIPINE BESYLATE
  4. CYMBALTA [Concomitant]
     Active Substance: DULOXETINE HYDROCHLORIDE
  5. ARIPIPRAZOLE [Concomitant]
     Active Substance: ARIPIPRAZOLE
  6. VALSARTAN [Concomitant]
     Active Substance: VALSARTAN
  7. multivitamin for mature women [Concomitant]
  8. VITAMIN D [Concomitant]
     Active Substance: VITAMIN D NOS

REACTIONS (7)
  - Constipation [None]
  - Flatulence [None]
  - Abdominal pain [None]
  - Diarrhoea [None]
  - Vomiting [None]
  - Abdominal pain upper [None]
  - Asthenia [None]

NARRATIVE: CASE EVENT DATE: 20250525
